FAERS Safety Report 6089791-4 (Version None)
Quarter: 2009Q1

REPORT INFORMATION
  Report Type: 
  Country: None (occurrence: None)
  Receive Date: 20090224
  Receipt Date: 20090214
  Transmission Date: 20090719
  Serious: No
  Sender: FDA-Public Use
  Company Number: US-ABBOTT-09P-163-0557632-00

PATIENT
  Sex: Male
  Weight: 90.8 kg

DRUGS (5)
  1. SIMCOR [Suspect]
     Indication: BLOOD CHOLESTEROL INCREASED
     Dosage: 500MG/20MG
     Route: 048
     Dates: start: 20090213, end: 20090214
  2. CRESTOR [Concomitant]
     Indication: BLOOD CHOLESTEROL INCREASED
     Route: 048
     Dates: start: 20070101
  3. PLAVIX [Concomitant]
     Indication: DIABETES PROPHYLAXIS
     Route: 048
  4. NOVOLOG [Concomitant]
     Indication: MEDICAL DIET
     Dosage: SLIDING SCALE
     Route: 058
  5. LEVAMIR [Concomitant]
     Indication: DIABETES MELLITUS
     Dosage: TID AC AND HS SLIDING SCALE
     Route: 058

REACTIONS (6)
  - DIARRHOEA [None]
  - DIZZINESS [None]
  - FEELING HOT [None]
  - FLUSHING [None]
  - NAUSEA [None]
  - PAIN OF SKIN [None]
